FAERS Safety Report 10187670 (Version 2)
Quarter: 2014Q2

REPORT INFORMATION
  Report Type: Spontaneous
  Country: IT (occurrence: IT)
  Receive Date: 20140522
  Receipt Date: 20140523
  Transmission Date: 20141212
  Serious: Yes (Other)
  Sender: FDA-Public Use
  Company Number: IT-TEVA-481410ISR

PATIENT
  Age: 73 Year
  Sex: Female

DRUGS (4)
  1. FLUOROURACIL [Suspect]
     Indication: PANCREATIC CARCINOMA
     Dosage: 3000 MG CYCLICAL
     Route: 041
     Dates: start: 20140331, end: 20140423
  2. OXALIPLATINO SUN 5MG/ML CONCENTRATE FOR SOLUTION FOR INFUSION [Suspect]
     Indication: PANCREATIC CARCINOMA
     Dosage: 125 MG CYCLICAL
     Route: 042
     Dates: start: 20140331, end: 20140423
  3. LEDERFOLIN - 175 MG POLVERE PER SOLUZIONE PER INFUSIONE [Concomitant]
     Indication: PRODUCT USED FOR UNKNOWN INDICATION
     Dosage: 300 MG
     Route: 042
  4. IRINOTECAN HYDROCHLORIDE TRIHYDRATE [Suspect]
     Indication: PANCREATIC CARCINOMA
     Dosage: 270 MG CYCLICAL
     Route: 042
     Dates: start: 20140331, end: 20140423

REACTIONS (5)
  - Blood bilirubin increased [Recovered/Resolved]
  - Leukopenia [Recovered/Resolved]
  - Neutropenia [Recovered/Resolved]
  - Pyrexia [Recovered/Resolved]
  - Transaminases increased [Recovered/Resolved]
